FAERS Safety Report 7273287-8 (Version None)
Quarter: 2011Q1

REPORT INFORMATION
  Report Type: 
  Country: None (occurrence: None)
  Receive Date: 20110128
  Receipt Date: 20110113
  Transmission Date: 20110831
  Serious: Yes (Hospitalization)
  Sender: FDA-Public Use
  Company Number: TCI2011A00113

PATIENT
  Age: 47 Year
  Sex: Female

DRUGS (3)
  1. FLAGYL [Concomitant]
  2. TAKEPRON OD TABLETS 30 (LANSOPRAZOLE) [Suspect]
     Indication: HELICOBACTER INFECTION
     Dosage: 60 MG (30 MG, 2 IN 1 D) PER ORAL
     Route: 048
     Dates: start: 20101208, end: 20101214
  3. AMOXICILLIN TRIHYDRATE [Suspect]
     Indication: HELICOBACTER INFECTION
     Dosage: 1500 (750 MG, 2 IN 1 D), PER ORAL
     Route: 048
     Dates: start: 20101208, end: 20101214

REACTIONS (7)
  - ABDOMINAL PAIN LOWER [None]
  - PELVIC FLUID COLLECTION [None]
  - INTESTINAL DILATATION [None]
  - KLEBSIELLA TEST POSITIVE [None]
  - DIARRHOEA HAEMORRHAGIC [None]
  - ENTEROCOLITIS BACTERIAL [None]
  - VOMITING [None]
